FAERS Safety Report 10496070 (Version 2)
Quarter: 2014Q4

REPORT INFORMATION
  Report Type: Spontaneous
  Country: AU (occurrence: AU)
  Receive Date: 20141003
  Receipt Date: 20141031
  Transmission Date: 20150528
  Serious: Yes (Life-Threatening, Other)
  Sender: FDA-Public Use
  Company Number: AU-ASTRAZENECA-2014SE73595

PATIENT
  Age: 60 Year
  Sex: Female
  Weight: 64 kg

DRUGS (3)
  1. SEROQUEL [Suspect]
     Active Substance: QUETIAPINE FUMARATE
     Indication: ANTIDEPRESSANT THERAPY
     Route: 048
     Dates: start: 201409
  2. VALIUM [Concomitant]
     Active Substance: DIAZEPAM
  3. SEROQUEL [Suspect]
     Active Substance: QUETIAPINE FUMARATE
     Indication: ANTIDEPRESSANT THERAPY
     Route: 048
     Dates: end: 201409

REACTIONS (9)
  - Suicide attempt [Unknown]
  - Gastrooesophageal reflux disease [Not Recovered/Not Resolved]
  - Paraesthesia [Not Recovered/Not Resolved]
  - Insomnia [Not Recovered/Not Resolved]
  - Eye pruritus [Not Recovered/Not Resolved]
  - Decreased appetite [Not Recovered/Not Resolved]
  - Intentional product use issue [Unknown]
  - Weight decreased [Unknown]
  - Dyspnoea [Not Recovered/Not Resolved]
